FAERS Safety Report 5961902-8 (Version None)
Quarter: 2008Q4

REPORT INFORMATION
  Report Type: 
  Country: None (occurrence: None)
  Receive Date: 20081121
  Receipt Date: 20081111
  Transmission Date: 20090506
  Serious: Yes (Other)
  Sender: FDA-Public Use
  Company Number: GR-KINGPHARMUSA00001-K200801296

PATIENT
  Age: 28 Year
  Sex: Male

DRUGS (3)
  1. SONATA [Suspect]
     Indication: INSOMNIA
     Dosage: 70-80 MG, QD
     Route: 048
  2. SONATA [Suspect]
     Dosage: 7 TO 8 PULVERIZED CAPSULES; 70-80 MG
     Route: 045
  3. SONATA [Suspect]
     Dosage: 10 MG, PRN
     Route: 048

REACTIONS (8)
  - ANXIETY [None]
  - DRUG ABUSE [None]
  - ELEVATED MOOD [None]
  - EUPHORIC MOOD [None]
  - INCORRECT ROUTE OF DRUG ADMINISTRATION [None]
  - INTENTIONAL DRUG MISUSE [None]
  - NERVOUSNESS [None]
  - WITHDRAWAL SYNDROME [None]
